FAERS Safety Report 7304277-4 (Version None)
Quarter: 2011Q1

REPORT INFORMATION
  Report Type: 
  Country: None (occurrence: None)
  Receive Date: 20110221
  Receipt Date: 20110207
  Transmission Date: 20110831
  Serious: Yes (Other)
  Sender: FDA-Public Use
  Company Number: US-BAYER-2011-013522

PATIENT

DRUGS (1)
  1. BETASERON [Suspect]

REACTIONS (2)
  - BRAIN NEOPLASM [None]
  - SUICIDAL IDEATION [None]
